FAERS Safety Report 9325438 (Version 1)
Quarter: 2013Q2

REPORT INFORMATION
  Report Type: Spontaneous
  Country: US (occurrence: None)
  Receive Date: 20130531
  Receipt Date: 20130531
  Transmission Date: 20140414
  Serious: Yes (Hospitalization)
  Sender: FDA-Public Use
  Company Number: None

PATIENT
  Age: 68 Year
  Sex: Male
  Weight: 58.3 kg

DRUGS (2)
  1. SERTRALINE [Suspect]
     Indication: DEPRESSION
     Route: 048
     Dates: start: 20101012, end: 20130412
  2. BUPROPION [Suspect]
     Indication: DEPRESSION
     Route: 048
     Dates: start: 20121127, end: 20130412

REACTIONS (4)
  - Confusional state [None]
  - Hallucination [None]
  - Mental status changes [None]
  - Hyponatraemia [None]
